FAERS Safety Report 22173828 (Version 1)
Quarter: 2023Q2

REPORT INFORMATION
  Report Type: Spontaneous
  Country: IT (occurrence: IT)
  Receive Date: 20230404
  Receipt Date: 20230404
  Transmission Date: 20230722
  Serious: Yes (Other)
  Sender: FDA-Public Use
  Company Number: IT-009507513-2302ITA007959

PATIENT
  Age: 59 Year
  Sex: Female

DRUGS (2)
  1. DELSTRIGO [Suspect]
     Active Substance: DORAVIRINE\LAMIVUDINE\TENOFOVIR DISOPROXIL FUMARATE
     Indication: HIV infection
     Dosage: UNK
     Route: 048
     Dates: start: 20210111, end: 20210130
  2. EFAVIRENZ [Suspect]
     Active Substance: EFAVIRENZ
     Indication: Antiviral treatment
     Dosage: UNK
     Route: 048
     Dates: start: 2009

REACTIONS (3)
  - Pathogen resistance [Unknown]
  - Viral load increased [Unknown]
  - Viral mutation identified [Unknown]

NARRATIVE: CASE EVENT DATE: 20230101
